FAERS Safety Report 25964506 (Version 1)
Quarter: 2025Q4

REPORT INFORMATION
  Report Type: Spontaneous
  Country: EG (occurrence: EG)
  Receive Date: 20251027
  Receipt Date: 20251027
  Transmission Date: 20260118
  Serious: Yes (Other)
  Sender: AMGEN
  Company Number: EG-AMGEN-EGYSP2025196256

PATIENT

DRUGS (8)
  1. XGEVA [Suspect]
     Active Substance: DENOSUMAB
     Indication: Hormone receptor positive HER2 negative breast cancer
     Dosage: 120 MILLIGRAM, Q6WK (STARTING FROM THE FIRST CYCLE (TOTAL OF 4 DOSES)
     Route: 058
  2. XGEVA [Suspect]
     Active Substance: DENOSUMAB
     Indication: Breast cancer female
  3. CYCLOPHOSPHAMIDE [Concomitant]
     Active Substance: CYCLOPHOSPHAMIDE
     Indication: Breast cancer female
     Dosage: UNK, Q3WK (FOUR CYCLES)
  4. CYCLOPHOSPHAMIDE [Concomitant]
     Active Substance: CYCLOPHOSPHAMIDE
     Indication: Hormone receptor positive HER2 negative breast cancer
  5. DOCETAXEL [Concomitant]
     Active Substance: DOCETAXEL
     Indication: Breast cancer female
     Dosage: UNK, Q3WK (FOUR CYCLES)
  6. DOCETAXEL [Concomitant]
     Active Substance: DOCETAXEL
     Indication: Hormone receptor positive HER2 negative breast cancer
  7. CALCIUM [Concomitant]
     Active Substance: CALCIUM
     Indication: Mineral supplementation
     Dosage: 1000 MILLIGRAM, QD
     Route: 048
  8. VITAMIN D [Concomitant]
     Active Substance: VITAMIN D NOS
     Indication: Vitamin supplementation
     Dosage: 800 INTERNATIONAL UNIT, QD
     Route: 048

REACTIONS (8)
  - Vomiting [Unknown]
  - Fatigue [Unknown]
  - Stomatitis [Unknown]
  - Dermatitis [Unknown]
  - Neuropathy peripheral [Unknown]
  - Hypocalcaemia [Unknown]
  - Nausea [Unknown]
  - Constipation [Unknown]
